FAERS Safety Report 6114393-0 (Version None)
Quarter: 2009Q1

REPORT INFORMATION
  Report Type: 
  Country: None (occurrence: None)
  Receive Date: 20090313
  Receipt Date: 20090311
  Transmission Date: 20090719
  Serious: Yes (Hospitalization)
  Sender: FDA-Public Use
  Company Number: FI-WYE-G03308309

PATIENT
  Sex: Male

DRUGS (5)
  1. TAZOCIN [Suspect]
     Indication: PSEUDOMONAL SEPSIS
     Route: 042
     Dates: start: 20090303, end: 20090306
  2. TRILEPTAL [Concomitant]
     Indication: EPILEPSY
     Route: 048
  3. HYDANTIN [Concomitant]
     Indication: EPILEPSY
     Route: 048
  4. ERGOCALCIFEROL [Concomitant]
     Route: 048
  5. OMEPRAZOLE [Concomitant]
     Indication: GASTRITIS
     Route: 048

REACTIONS (4)
  - BONE MARROW FAILURE [None]
  - HAEMOGLOBIN DECREASED [None]
  - THROMBOCYTOPENIA [None]
  - WHITE BLOOD CELL COUNT DECREASED [None]
